FAERS Safety Report 6603062-6 (Version None)
Quarter: 2010Q1

REPORT INFORMATION
  Report Type: 
  Country: None (occurrence: None)
  Receive Date: 20100226
  Receipt Date: 20100220
  Transmission Date: 20100710
  Serious: Yes (Other)
  Sender: FDA-Public Use
  Company Number: PHHY2010JP09026

PATIENT
  Sex: Male

DRUGS (8)
  1. COMTAN CMT+TAB [Suspect]
     Indication: PARKINSON'S DISEASE
     Dosage: 100 MG, TWICE DAILY
     Route: 048
     Dates: start: 20081127
  2. COMTAN CMT+TAB [Suspect]
     Dosage: 200 MG, BID
     Route: 048
     Dates: start: 20090417
  3. COMTAN CMT+TAB [Suspect]
     Dosage: 100 MG, BID
     Route: 048
     Dates: start: 20090515
  4. MADOPAR [Suspect]
     Indication: PARKINSON'S DISEASE
     Dosage: 400 MG DAILY
     Route: 048
     Dates: start: 20090501
  5. SELEGILINE HCL [Suspect]
     Indication: PARKINSON'S DISEASE
     Dosage: 2.5 MG DAILY
     Route: 048
  6. REQUIP [Suspect]
     Indication: PARKINSON'S DISEASE
     Dosage: 6 MG DAILY
     Route: 048
     Dates: start: 20080116
  7. ARICEPT [Concomitant]
     Indication: DEMENTIA ALZHEIMER'S TYPE
     Dosage: UNK
     Dates: start: 20080612
  8. URIEF [Concomitant]
     Indication: BENIGN PROSTATIC HYPERPLASIA
     Dosage: UNK
     Route: 048
     Dates: start: 20090618

REACTIONS (1)
  - HALLUCINATION, VISUAL [None]
